FAERS Safety Report 12280400 (Version 10)
Quarter: 2022Q1

REPORT INFORMATION
  Report Type: Other
  Country: CA (occurrence: None)
  Receive Date: 20160419
  Receipt Date: 20220224
  Transmission Date: 20220423
  Serious: Yes (Other)
  Sender: FDA-Public Use
  Company Number: CA-ROCHE-1509238

PATIENT
  Age: 57 Year
  Sex: Female

DRUGS (19)
  1. ACTEMRA [Suspect]
     Active Substance: TOCILIZUMAB
     Indication: Rheumatoid arthritis
     Route: 042
     Dates: start: 20130517
  2. ACTEMRA [Suspect]
     Active Substance: TOCILIZUMAB
     Route: 042
     Dates: start: 20150309
  3. ACTEMRA [Suspect]
     Active Substance: TOCILIZUMAB
     Route: 042
     Dates: start: 20150515
  4. ACTEMRA [Suspect]
     Active Substance: TOCILIZUMAB
     Route: 042
     Dates: start: 20160617
  5. ACTEMRA [Suspect]
     Active Substance: TOCILIZUMAB
     Route: 042
  6. ACTEMRA [Suspect]
     Active Substance: TOCILIZUMAB
     Indication: Rheumatoid arthritis
     Route: 058
     Dates: start: 20190607
  7. MODERNA COVID-19 VACCINE [Suspect]
     Active Substance: ELASOMERAN
     Indication: Product used for unknown indication
     Route: 065
  8. NAPROSYN [Concomitant]
     Active Substance: NAPROXEN
     Route: 065
  9. ERDOSTEINE [Concomitant]
     Active Substance: ERDOSTEINE
  10. COUMADIN [Concomitant]
     Active Substance: WARFARIN SODIUM
  11. OMEPRAZOLE [Concomitant]
     Active Substance: OMEPRAZOLE
  12. ALENDRONATE [Concomitant]
     Active Substance: ALENDRONATE SODIUM
  13. CLONAZEPAM [Concomitant]
     Active Substance: CLONAZEPAM
  14. PERINDOPRIL [Concomitant]
     Active Substance: PERINDOPRIL
  15. FLEXERIL [Concomitant]
     Active Substance: CYCLOBENZAPRINE HYDROCHLORIDE
  16. NORVASC [Concomitant]
     Active Substance: AMLODIPINE BESYLATE
  17. PANTOPRAZOLE SODIUM [Concomitant]
     Active Substance: PANTOPRAZOLE SODIUM
  18. IODINE [Concomitant]
     Active Substance: IODINE
  19. TYLENOL WITH CODEINE [Concomitant]
     Active Substance: ACETAMINOPHEN\CODEINE PHOSPHATE
     Indication: Arthralgia

REACTIONS (17)
  - Depressive symptom [Recovering/Resolving]
  - Oedema peripheral [Unknown]
  - Musculoskeletal stiffness [Not Recovered/Not Resolved]
  - Headache [Recovering/Resolving]
  - Synovitis [Unknown]
  - Oral disorder [Recovering/Resolving]
  - Back pain [Not Recovered/Not Resolved]
  - Musculoskeletal stiffness [Unknown]
  - Iodine allergy [Unknown]
  - Seasonal allergy [Unknown]
  - Nodule [Not Recovered/Not Resolved]
  - Arthralgia [Unknown]
  - Sensory disturbance [Unknown]
  - Pruritus [Unknown]
  - Food allergy [Unknown]
  - Arthralgia [Not Recovered/Not Resolved]
  - Arthralgia [Unknown]

NARRATIVE: CASE EVENT DATE: 20150101
